FAERS Safety Report 5505896-8 (Version None)
Quarter: 2007Q4

REPORT INFORMATION
  Report Type: 
  Country: None (occurrence: None)
  Receive Date: 20071102
  Receipt Date: 20071023
  Transmission Date: 20080405
  Serious: Yes (Hospitalization, Other)
  Sender: FDA-Public Use
  Company Number: US-PFIZER INC-2007090494

PATIENT
  Sex: Male

DRUGS (3)
  1. CHANTIX [Suspect]
  2. NORVASC [Concomitant]
  3. ACE INHIBITOR NOS [Concomitant]

REACTIONS (1)
  - ERYTHEMA MULTIFORME [None]
